FAERS Safety Report 6861126-6 (Version None)
Quarter: 2010Q3

REPORT INFORMATION
  Report Type: 
  Country: None (occurrence: None)
  Receive Date: 20100720
  Receipt Date: 20100708
  Transmission Date: 20110219
  Serious: Yes (Other)
  Sender: FDA-Public Use
  Company Number: US-PFIZER INC-2010085645

PATIENT
  Sex: Female
  Weight: 81.633 kg

DRUGS (6)
  1. CHANTIX [Suspect]
     Indication: SMOKING CESSATION THERAPY
     Dosage: 0.5 MG, 1X/DAY
     Route: 048
     Dates: start: 20100401, end: 20100101
  2. CHANTIX [Suspect]
     Dosage: 1 MG, UNK
     Route: 048
     Dates: start: 20100101
  3. WELLBUTRIN [Concomitant]
     Indication: SMOKING CESSATION THERAPY
     Dosage: UNK MG, UNK
     Route: 048
     Dates: start: 20100401
  4. MELOXICAM [Concomitant]
     Indication: ARTHRITIS
     Dosage: 15 MG, 1X/DAY
     Route: 048
  5. CALTRATE [Concomitant]
     Dosage: UNK
  6. MULTI-VITAMINS [Concomitant]
     Dosage: UNK

REACTIONS (2)
  - GLOSSODYNIA [None]
  - TONGUE BLISTERING [None]
